FAERS Safety Report 26150571 (Version 1)
Quarter: 2025Q4

REPORT INFORMATION
  Report Type: Spontaneous
  Country: US (occurrence: US)
  Receive Date: 20251212
  Receipt Date: 20251212
  Transmission Date: 20260117
  Serious: No
  Sender: SANDOZ
  Company Number: US-SANDOZ-SDZ2025US093100

PATIENT
  Age: 62 Year
  Sex: Female

DRUGS (1)
  1. RECLAST [Suspect]
     Active Substance: ZOLEDRONIC ACID
     Indication: Product used for unknown indication
     Dosage: STRENGTH: 5MG/100ML
     Route: 065
     Dates: start: 2025

REACTIONS (6)
  - Ocular hyperaemia [Not Recovered/Not Resolved]
  - Feeling abnormal [Unknown]
  - Pyrexia [Unknown]
  - Pain [Unknown]
  - Headache [Unknown]
  - Asthenia [Unknown]

NARRATIVE: CASE EVENT DATE: 20250101
